FAERS Safety Report 9785646 (Version 1)
Quarter: 2013Q4

REPORT INFORMATION
  Report Type: Spontaneous
  Country: US (occurrence: None)
  Receive Date: 20131226
  Receipt Date: 20131226
  Transmission Date: 20140711
  Serious: Yes (Hospitalization)
  Sender: FDA-Public Use
  Company Number: None

PATIENT
  Age: 54 Year
  Sex: Female
  Weight: 95.26 kg

DRUGS (3)
  1. OMEPRAZOLE [Suspect]
     Indication: HYPERTENSION
     Dosage: 40 MG  1 PILL  1  ONCE A DAY  BY MOUTH
     Route: 048
     Dates: start: 201208, end: 201310
  2. OMEPRAZOLE [Suspect]
     Indication: GASTRIC DISORDER
     Dosage: 40 MG  1 PILL  1  ONCE A DAY  BY MOUTH
     Route: 048
     Dates: start: 201208, end: 201310
  3. LISINOPRIL [Suspect]
     Indication: HYPERTENSION
     Dosage: 20MG  1 PILL  1 ONCE A DAY  BY MOUTH
     Route: 048
     Dates: start: 201208, end: 201310

REACTIONS (10)
  - Choking [None]
  - Swollen tongue [None]
  - Yellow skin [None]
  - Dysphagia [None]
  - Eating disorder [None]
  - Decreased appetite [None]
  - Intestinal polyp [None]
  - Gastric polyps [None]
  - Muscle spasms [None]
  - Weight decreased [None]
